FAERS Safety Report 25033727 (Version 2)
Quarter: 2025Q1

REPORT INFORMATION
  Report Type: Report from Study
  Country: DE (occurrence: DE)
  Receive Date: 20250303
  Receipt Date: 20250317
  Transmission Date: 20250409
  Serious: Yes (Death, Hospitalization, Other)
  Sender: PURDUE
  Company Number: DE-BRISTOL-MYERS SQUIBB COMPANY-2025-007574

PATIENT
  Age: 61 Year
  Sex: Male

DRUGS (8)
  1. MORPHINE SULFATE [Suspect]
     Active Substance: MORPHINE SULFATE
     Indication: Product used for unknown indication
     Route: 065
  2. OPDIVO [Suspect]
     Active Substance: NIVOLUMAB
     Indication: Non-small cell lung cancer
     Dosage: 360 MILLIGRAM, 3/WEEK
     Route: 042
     Dates: start: 20241125
  3. YERVOY [Suspect]
     Active Substance: IPILIMUMAB
     Indication: Non-small cell lung cancer
     Dosage: 80 MILLIGRAM
     Route: 042
     Dates: start: 20241125
  4. PACLITAXEL [Suspect]
     Active Substance: PACLITAXEL
     Indication: Non-small cell lung cancer
     Dosage: 650 MILLIGRAM
     Route: 042
     Dates: start: 20241125, end: 20241230
  5. CARBOPLATIN [Suspect]
     Active Substance: CARBOPLATIN
     Indication: Non-small cell lung cancer
     Dosage: 650 MILLIGRAM, 3/WEEK
     Route: 042
     Dates: start: 20241125, end: 20241230
  6. FOLIC ACID [Concomitant]
     Active Substance: FOLIC ACID
     Indication: Prophylaxis
     Route: 065
     Dates: start: 20241210
  7. CIPROFLOXACIN [Concomitant]
     Active Substance: CIPROFLOXACIN
     Indication: Prophylaxis
     Route: 065
     Dates: start: 20241128
  8. SILAPO [Concomitant]
     Indication: Product used for unknown indication
     Route: 065
     Dates: start: 20241216

REACTIONS (3)
  - Pleural effusion [Fatal]
  - Respiratory distress [Fatal]
  - Hyperthyroidism [Unknown]

NARRATIVE: CASE EVENT DATE: 20250107
